FAERS Safety Report 25345803 (Version 1)
Quarter: 2025Q2

REPORT INFORMATION
  Report Type: Spontaneous
  Country: US (occurrence: US)
  Receive Date: 20250522
  Receipt Date: 20250522
  Transmission Date: 20250717
  Serious: No
  Sender: BRISTOL-MYERS SQUIBB COMPANY
  Company Number: US-BRISTOL-MYERS SQUIBB COMPANY-2025-072160

PATIENT
  Age: 45 Year
  Sex: Female
  Weight: 61.23 kg

DRUGS (1)
  1. REVLIMID [Suspect]
     Active Substance: LENALIDOMIDE
     Indication: Plasma cell myeloma
     Dosage: FREQUENCY : 3 WEEKS ON, 1 WEEK OFF
     Route: 048

REACTIONS (4)
  - Pain of skin [Unknown]
  - Rash [Unknown]
  - Dry skin [Unknown]
  - Pruritus [Unknown]
